FAERS Safety Report 4754766-1 (Version None)
Quarter: 2005Q3

REPORT INFORMATION
  Report Type: 
  Country: None (occurrence: None)
  Receive Date: 20050826
  Receipt Date: 20050826
  Transmission Date: 20060218
  Serious: Yes (Hospitalization)
  Sender: FDA-Public Use
  Company Number: None

PATIENT
  Age: 79 Year
  Sex: Male
  Weight: 58.9676 kg

DRUGS (16)
  1. MEGACE [Suspect]
     Indication: CHEMOTHERAPY
     Dosage: 20 ML (800MG) PO QD
     Route: 048
     Dates: start: 20050803, end: 20050809
  2. MEGACE [Suspect]
     Indication: NEOPLASM MALIGNANT
     Dosage: 20 ML (800MG) PO QD
     Route: 048
     Dates: start: 20050803, end: 20050809
  3. MEGACE [Suspect]
     Indication: WEIGHT DECREASED
     Dosage: 20 ML (800MG) PO QD
     Route: 048
     Dates: start: 20050803, end: 20050809
  4. MEGACE [Suspect]
     Indication: CHEMOTHERAPY
     Dosage: 20 ML (800MG) PO QD
     Route: 048
     Dates: start: 20050819
  5. MEGACE [Suspect]
     Indication: NEOPLASM MALIGNANT
     Dosage: 20 ML (800MG) PO QD
     Route: 048
     Dates: start: 20050819
  6. MEGACE [Suspect]
     Indication: WEIGHT DECREASED
     Dosage: 20 ML (800MG) PO QD
     Route: 048
     Dates: start: 20050819
  7. TERAZOSIN HCL [Concomitant]
  8. LISINOPRIL [Concomitant]
  9. TRIMETH/SULFA [Concomitant]
  10. EFFEXOR [Concomitant]
  11. ASPIRIN [Concomitant]
  12. ZOFRAN [Concomitant]
  13. COMPAZINE [Concomitant]
  14. OXALIPLATIN [Concomitant]
  15. FLUOROURACIL [Concomitant]
  16. LEUCA [Concomitant]

REACTIONS (17)
  - ABDOMINAL DISTENSION [None]
  - ABDOMINAL PAIN [None]
  - ANOREXIA [None]
  - ASTHENIA [None]
  - BLADDER OBSTRUCTION [None]
  - CONDITION AGGRAVATED [None]
  - CONSTIPATION [None]
  - DEHYDRATION [None]
  - DRUG TOXICITY [None]
  - HYPOTENSION [None]
  - MUSCULAR WEAKNESS [None]
  - NAUSEA [None]
  - PAIN [None]
  - POLLAKIURIA [None]
  - RENAL FAILURE [None]
  - VOMITING [None]
  - WEIGHT DECREASED [None]
